FAERS Safety Report 6694129-5 (Version None)
Quarter: 2010Q2

REPORT INFORMATION
  Report Type: 
  Country: None (occurrence: None)
  Receive Date: 20100423
  Receipt Date: 20090921
  Transmission Date: 20101027
  Serious: No
  Sender: FDA-Public Use
  Company Number: A0748874A

PATIENT
  Sex: Male

DRUGS (12)
  1. FLOVENT [Suspect]
     Indication: DRUG USE FOR UNKNOWN INDICATION
     Dosage: 110MCG UNKNOWN
     Route: 055
  2. FLONASE [Suspect]
     Indication: DRUG USE FOR UNKNOWN INDICATION
     Dosage: 50MCG UNKNOWN
     Route: 045
  3. PAXIL [Suspect]
     Indication: DRUG USE FOR UNKNOWN INDICATION
     Dosage: 40MG UNKNOWN
     Route: 048
  4. ZANTAC [Suspect]
     Indication: DRUG USE FOR UNKNOWN INDICATION
     Dosage: 150MG UNKNOWN
     Route: 065
  5. VESICARE [Suspect]
     Indication: DRUG USE FOR UNKNOWN INDICATION
     Dosage: 5MG UNKNOWN
     Route: 065
  6. VICODIN [Concomitant]
  7. PROAIR HFA [Concomitant]
  8. KLONOPIN [Concomitant]
  9. UNSPECIFIED MEDICATION [Concomitant]
  10. REGLAN [Concomitant]
  11. NITROGLYCERIN [Concomitant]
  12. NEBULIZER [Concomitant]

REACTIONS (14)
  - ABDOMINAL DISCOMFORT [None]
  - ADVERSE EVENT [None]
  - CHEST DISCOMFORT [None]
  - DIZZINESS [None]
  - DRUG INEFFECTIVE [None]
  - DRY EYE [None]
  - EPISTAXIS [None]
  - HEADACHE [None]
  - NASAL DRYNESS [None]
  - PRURITUS [None]
  - RASH [None]
  - SINUS DISORDER [None]
  - STRESS [None]
  - THROAT IRRITATION [None]
